FAERS Safety Report 21290380 (Version 2)
Quarter: 2022Q4

REPORT INFORMATION
  Report Type: Spontaneous
  Country: BR (occurrence: BR)
  Receive Date: 20220902
  Receipt Date: 20221202
  Transmission Date: 20230113
  Serious: No
  Sender: FDA-Public Use
  Company Number: BR-009507513-2203BRA008753

PATIENT
  Age: 27 Year
  Sex: Female

DRUGS (1)
  1. MOLNUPIRAVIR [Suspect]
     Active Substance: MOLNUPIRAVIR
     Dosage: UNK
     Route: 048
     Dates: end: 20210712

REACTIONS (2)
  - Extrasystoles [Unknown]
  - Maternal exposure via partner during pregnancy [Recovered/Resolved]
